FAERS Safety Report 25727367 (Version 1)
Quarter: 2025Q3

REPORT INFORMATION
  Report Type: Report from Study
  Country: US (occurrence: US)
  Receive Date: 20250826
  Receipt Date: 20250826
  Transmission Date: 20251020
  Serious: No
  Sender: SUNOVION
  Company Number: US-SUMITOMO PHARMA SWITZERLAND GMBH-2025SPA010626

PATIENT
  Age: 55 Year
  Sex: Male

DRUGS (7)
  1. ORGOVYX [Suspect]
     Active Substance: RELUGOLIX
     Indication: Prostate cancer
     Route: 048
  2. ORGOVYX [Suspect]
     Active Substance: RELUGOLIX
     Route: 048
  3. BICALUTAMIDE [Concomitant]
     Active Substance: BICALUTAMIDE
  4. LEXAPRO [Concomitant]
     Active Substance: ESCITALOPRAM OXALATE
  5. VITAMINS [Concomitant]
     Active Substance: VITAMINS
  6. SILODOSIN [Concomitant]
     Active Substance: SILODOSIN
  7. VITAMIN D [Concomitant]
     Active Substance: VITAMIN D NOS

REACTIONS (1)
  - Poor quality sleep [Unknown]
